FAERS Safety Report 11796824 (Version 7)
Quarter: 2017Q2

REPORT INFORMATION
  Report Type: Report from Study
  Country: JP (occurrence: JP)
  Receive Date: 20151203
  Receipt Date: 20170613
  Transmission Date: 20170829
  Serious: Yes (Hospitalization, Other)
  Sender: FDA-Public Use
  Company Number: JP-INCYTE CORPORATION-2015IN006266

PATIENT

DRUGS (27)
  1. RED CELLS CONCENTRATES-LEUKOCYTES REDUCED [Concomitant]
     Dosage: 2 IU, UNK
     Route: 041
     Dates: start: 20160926, end: 20160926
  2. RED CELLS CONCENTRATES-LEUKOCYTES REDUCED [Concomitant]
     Dosage: 2 IU, UNK
     Route: 041
     Dates: start: 20161226, end: 20161226
  3. LIVACT [Concomitant]
     Active Substance: AMINO ACIDS
     Indication: HYPOALBUMINAEMIA
     Route: 065
  4. RED CELLS CONCENTRATES-LEUKOCYTES REDUCED [Concomitant]
     Dosage: 2 IU, UNK
     Route: 041
     Dates: start: 20150423
  5. RED CELLS CONCENTRATES-LEUKOCYTES REDUCED [Concomitant]
     Dosage: 2 IU, UNK
     Route: 041
     Dates: start: 20160822, end: 20160822
  6. RED CELLS CONCENTRATES-LEUKOCYTES REDUCED [Concomitant]
     Dosage: 2 IU, UNK
     Route: 041
     Dates: start: 20161017, end: 20161017
  7. AVOLVE [Concomitant]
     Active Substance: DUTASTERIDE
     Indication: HYPERTONIC BLADDER
     Route: 065
  8. JAKAVI [Suspect]
     Active Substance: RUXOLITINIB
     Dosage: 7.5 MG, BID
     Route: 048
     Dates: start: 20150907, end: 20151009
  9. RED CELLS CONCENTRATES-LEUKOCYTES REDUCED [Concomitant]
     Dosage: 2 IU, UNK
     Route: 041
     Dates: start: 20150824, end: 20150906
  10. RED CELLS CONCENTRATES-LEUKOCYTES REDUCED [Concomitant]
     Dosage: 2 IU, UNK
     Route: 041
     Dates: start: 20170213, end: 20170213
  11. RED CELLS CONCENTRATES-LEUKOCYTES REDUCED [Concomitant]
     Dosage: 2 IU, UNK
     Route: 041
     Dates: start: 20150727
  12. RED CELLS CONCENTRATES-LEUKOCYTES REDUCED [Concomitant]
     Dosage: 2 IU, UNK
     Route: 041
     Dates: start: 20151109, end: 20151109
  13. RED CELLS CONCENTRATES-LEUKOCYTES REDUCED [Concomitant]
     Dosage: 2 IU, UNK
     Route: 041
     Dates: start: 20150521
  14. RED CELLS CONCENTRATES-LEUKOCYTES REDUCED [Concomitant]
     Dosage: 2 IU, UNK
     Route: 041
     Dates: start: 20150615
  15. JAKAVI [Suspect]
     Active Substance: RUXOLITINIB
     Indication: MYELOFIBROSIS
     Dosage: 5 MG, BID
     Route: 048
     Dates: start: 20150223, end: 20150301
  16. JAKAVI [Suspect]
     Active Substance: RUXOLITINIB
     Dosage: 10 MG, BID
     Route: 048
     Dates: start: 20150302, end: 20150422
  17. JAKAVI [Suspect]
     Active Substance: RUXOLITINIB
     Dosage: 5 MG, BID
     Route: 048
     Dates: start: 20151010, end: 20170221
  18. TAMSULOSIN [Concomitant]
     Active Substance: TAMSULOSIN
     Indication: HYPERTONIC BLADDER
     Route: 065
  19. TAMSULOSIN [Concomitant]
     Active Substance: TAMSULOSIN
     Route: 065
  20. RED CELLS CONCENTRATES-LEUKOCYTES REDUCED [Concomitant]
     Dosage: 2 IU, UNK
     Route: 041
     Dates: start: 20150907, end: 20150907
  21. RED CELLS CONCENTRATES-LEUKOCYTES REDUCED [Concomitant]
     Dosage: 2 IU, UNK
     Route: 041
     Dates: start: 20161212, end: 20161212
  22. RED CELLS CONCENTRATES-LEUKOCYTES REDUCED [Concomitant]
     Dosage: 2 IU, UNK
     Route: 041
     Dates: start: 20170116, end: 20170116
  23. JAKAVI [Suspect]
     Active Substance: RUXOLITINIB
     Dosage: 5 MG, BID
     Route: 048
     Dates: start: 20150423, end: 20150906
  24. RED CELLS CONCENTRATES-LEUKOCYTES REDUCED [Concomitant]
     Indication: MYELOFIBROSIS
     Dosage: 2 IU, UNK
     Route: 041
     Dates: start: 20150316
  25. RED CELLS CONCENTRATES-LEUKOCYTES REDUCED [Concomitant]
     Indication: ANAEMIA
     Dosage: 2 IU, UNK
     Route: 041
     Dates: start: 20150330
  26. RED CELLS CONCENTRATES-LEUKOCYTES REDUCED [Concomitant]
     Dosage: 2 IU, UNK
     Route: 041
     Dates: start: 20161107, end: 20161107
  27. TAMSULOSIN [Concomitant]
     Active Substance: TAMSULOSIN
     Route: 065

REACTIONS (4)
  - Anaemia [Not Recovered/Not Resolved]
  - Anaemia [Recovered/Resolved]
  - Hepatic function abnormal [Not Recovered/Not Resolved]
  - Meningitis viral [Recovered/Resolved]

NARRATIVE: CASE EVENT DATE: 20150316
